FAERS Safety Report 13624337 (Version 1)
Quarter: 2017Q2

REPORT INFORMATION
  Report Type: Report from Study
  Country: None (occurrence: BR)
  Receive Date: 20170608
  Receipt Date: 20170608
  Transmission Date: 20170830
  Serious: Yes (Hospitalization, Other)
  Sender: FDA-Public Use
  Company Number: BR-ABBVIE-17K-020-1996497-00

PATIENT
  Sex: Male
  Weight: 61 kg

DRUGS (4)
  1. HUMIRA [Suspect]
     Active Substance: ADALIMUMAB
     Dosage: LOADING DOSE WEEK TWO
     Route: 058
     Dates: start: 20100808, end: 20100808
  2. HUMIRA [Suspect]
     Active Substance: ADALIMUMAB
     Route: 058
  3. HUMIRA [Suspect]
     Active Substance: ADALIMUMAB
     Indication: CROHN^S DISEASE
     Dosage: FOR THREE MONTHS
     Route: 058
  4. HUMIRA [Suspect]
     Active Substance: ADALIMUMAB
     Dosage: LOADING DOSE
     Route: 058
     Dates: start: 20100801, end: 20100801

REACTIONS (9)
  - Intestinal obstruction [Not Recovered/Not Resolved]
  - Intestinal obstruction [Recovered/Resolved]
  - Accident [Recovered/Resolved]
  - Lower limb fracture [Recovered/Resolved]
  - Crohn^s disease [Unknown]
  - Intestinal obstruction [Recovered/Resolved]
  - Impaired healing [Recovered/Resolved]
  - Post procedural complication [Recovered/Resolved]
  - Crohn^s disease [Recovered/Resolved]

NARRATIVE: CASE EVENT DATE: 2012
